FAERS Safety Report 6729746-7 (Version None)
Quarter: 2010Q2

REPORT INFORMATION
  Report Type: 
  Country: None (occurrence: None)
  Receive Date: 20100518
  Receipt Date: 20100507
  Transmission Date: 20101027
  Serious: Yes (Other)
  Sender: FDA-Public Use
  Company Number: US-TYCO HEALTHCARE/MALLINCKRODT-T201001191

PATIENT
  Sex: Male

DRUGS (1)
  1. OPTIRAY 350 [Suspect]
     Indication: COMPUTERISED TOMOGRAM
     Dosage: 70 ML, UNK
     Route: 042
     Dates: start: 20100507, end: 20100507

REACTIONS (2)
  - DYSPNOEA [None]
  - RESPIRATORY DISORDER [None]
